FAERS Safety Report 21407886 (Version 1)
Quarter: 2022Q4

REPORT INFORMATION
  Report Type: Spontaneous
  Country: PL (occurrence: PL)
  Receive Date: 20221004
  Receipt Date: 20221004
  Transmission Date: 20230113
  Serious: Yes (Other)
  Sender: FDA-Public Use
  Company Number: PL-AMGEN-POLSP2022072582

PATIENT
  Age: 80 Year
  Sex: Female
  Weight: 71 kg

DRUGS (13)
  1. FLUOROURACIL [Suspect]
     Active Substance: FLUOROURACIL
     Indication: Colon cancer metastatic
     Dosage: UNK, START 21-MAR-2022
     Route: 065
     Dates: start: 20220321
  2. LEUCOVORIN [Suspect]
     Active Substance: LEUCOVORIN
     Indication: Colon cancer metastatic
     Dosage: UNK, START 21-MAR-2022
     Route: 065
     Dates: start: 20220321
  3. IRINOTECAN [Suspect]
     Active Substance: IRINOTECAN
     Indication: Colon cancer metastatic
     Dosage: UNK, START 21-MAR-2022
     Route: 065
     Dates: start: 20220321
  4. VECTIBIX [Suspect]
     Active Substance: PANITUMUMAB
     Indication: Colon cancer metastatic
     Dosage: UNK, START 21-MAR-2022
     Route: 065
     Dates: start: 20220321
  5. VECTIBIX [Suspect]
     Active Substance: PANITUMUMAB
     Indication: Colon cancer metastatic
     Dosage: 444 MILLIGRAM, START DATE: 07-MAR-2022
     Route: 042
     Dates: start: 20220307
  6. VECTIBIX [Suspect]
     Active Substance: PANITUMUMAB
     Dosage: 426 MILLIGRAM,  START DATE: 04-APR-2022
     Route: 042
     Dates: start: 20220404
  7. INSULIN LISPRO [Concomitant]
     Active Substance: INSULIN LISPRO
     Dosage: 8 UNIT, SUBCUTANEOUSLY (SC) AT 7.30 A.M.,
     Route: 058
  8. INSULIN HUMAN [Concomitant]
     Active Substance: INSULIN HUMAN
     Dosage: 8 UNIT AT 7:00 PM
     Route: 058
  9. TRANXENE [Concomitant]
     Active Substance: CLORAZEPATE DIPOTASSIUM
     Dosage: 5 MILLIGRAM, 1X1
     Route: 065
  10. PROPRANOLOL [Concomitant]
     Active Substance: PROPRANOLOL HYDROCHLORIDE
     Dosage: 40 MILLIGRAM, 1X1
     Route: 065
  11. DIRONORM [Concomitant]
     Dosage: UNK, 20 MG+ 10 MG:1X1
     Route: 065
  12. DOXANORM [Concomitant]
     Dosage: 4 MILLIGRAM, HS 1X1 AT BEDTIME
     Route: 065
  13. SPIRONOLACTONE [Concomitant]
     Active Substance: SPIRONOLACTONE
     Dosage: 25 MILLIGRAM,1X1
     Route: 065

REACTIONS (2)
  - Neutropenia [Unknown]
  - Lymphadenopathy [Unknown]

NARRATIVE: CASE EVENT DATE: 20220101
